FAERS Safety Report 4713665-1 (Version None)
Quarter: 2005Q3

REPORT INFORMATION
  Report Type: 
  Country: None (occurrence: None)
  Receive Date: 20050713
  Receipt Date: 20050627
  Transmission Date: 20060218
  Serious: Yes (Hospitalization, Other)
  Sender: FDA-Public Use
  Company Number: USA050596957

PATIENT
  Age: 59 Year
  Sex: Male
  Weight: 82 kg

DRUGS (9)
  1. ALIMTA [Suspect]
     Indication: NON-SMALL CELL LUNG CANCER METASTATIC
     Dosage: 500MG/M2
     Dates: start: 20050114
  2. VITAMIN B-12 [Concomitant]
  3. FOLIC ACID [Concomitant]
  4. DECADRON [Concomitant]
  5. OXYCONTIN [Concomitant]
  6. XANAX [Concomitant]
  7. AMBIEN [Concomitant]
  8. LANTUS [Concomitant]
  9. OXYCODONE [Concomitant]

REACTIONS (13)
  - ANAEMIA [None]
  - BAND NEUTROPHIL PERCENTAGE INCREASED [None]
  - CONDITION AGGRAVATED [None]
  - DISEASE PROGRESSION [None]
  - EPISTAXIS [None]
  - HYPOVOLAEMIA [None]
  - LYMPHOCYTE PERCENTAGE INCREASED [None]
  - MONOCYTE PERCENTAGE INCREASED [None]
  - NEUTROPENIA [None]
  - PYREXIA [None]
  - SYNCOPE [None]
  - THROMBOCYTOPENIA [None]
  - WHITE BLOOD CELL COUNT DECREASED [None]
